FAERS Safety Report 23428853 (Version 1)
Quarter: 2024Q1

REPORT INFORMATION
  Report Type: Spontaneous
  Country: US (occurrence: US)
  Receive Date: 20240122
  Receipt Date: 20240122
  Transmission Date: 20240410
  Serious: No
  Sender: FDA-Public Use
  Company Number: US-Merck Healthcare KGaA-2024003406

PATIENT
  Sex: Female

DRUGS (3)
  1. MAVENCLAD [Suspect]
     Active Substance: CLADRIBINE
     Indication: Multiple sclerosis
     Dosage: YEAR ONE THERAPY
     Route: 048
     Dates: start: 20220418, end: 20220608
  2. MAVENCLAD [Suspect]
     Active Substance: CLADRIBINE
     Dosage: YEAR TWO MONTH ONE THERAPY: 20 MG ON DAY 1 TO 4 AND 10 MG ON DAY 5
     Route: 048
     Dates: start: 20231218, end: 20231222
  3. MAVENCLAD [Suspect]
     Active Substance: CLADRIBINE
     Dosage: YEAR TWO MONTH TWO THERAPY: 20 MG ON DAY 1 TO 4 AND 10 MG ON DAY 5
     Route: 048
     Dates: start: 20240114, end: 20240118

REACTIONS (1)
  - Headache [Recovered/Resolved]
